FAERS Safety Report 13355066 (Version 1)
Quarter: 2017Q1

REPORT INFORMATION
  Report Type: Spontaneous
  Country: SI (occurrence: SI)
  Receive Date: 20170321
  Receipt Date: 20170321
  Transmission Date: 20170429
  Serious: Yes (Other)
  Sender: FDA-Public Use
  Company Number: SI-BAYER-2017-024030

PATIENT
  Age: 77 Year
  Sex: Male

DRUGS (7)
  1. TELMISARTAN. [Concomitant]
     Active Substance: TELMISARTAN
  2. XARELTO [Suspect]
     Active Substance: RIVAROXABAN
  3. AMIODARONE [Concomitant]
     Active Substance: AMIODARONE
  4. HYDROCHLOROTHIAZIDE. [Concomitant]
     Active Substance: HYDROCHLOROTHIAZIDE
  5. ASPIRIN PROTECT 100 MG [Suspect]
     Active Substance: ASPIRIN
  6. CLOPIDOGREL [Suspect]
     Active Substance: CLOPIDOGREL BISULFATE
  7. PRAVASTATIN. [Concomitant]
     Active Substance: PRAVASTATIN

REACTIONS (2)
  - Coronary artery restenosis [None]
  - Haemorrhage subcutaneous [Recovered/Resolved]
